FAERS Safety Report 8785285 (Version 2)
Quarter: 2012Q4

REPORT INFORMATION
  Report Type: 
  Country: US (occurrence: US)
  Receive Date: 20120914
  Receipt Date: 20121029
  Transmission Date: 20130627
  Serious: Yes (Other)
  Sender: FDA-Public Use
  Company Number: US-SANOFI-AVENTIS-2012SA066262

PATIENT
  Age: 78 Year
  Sex: Male
  Weight: 113 kg

DRUGS (9)
  1. DIABETA [Suspect]
     Route: 048
     Dates: end: 2012
  2. METFORMIN [Suspect]
     Indication: DIABETES
     Route: 048
  3. WARFARIN [Concomitant]
     Indication: ANTICOAGULANT THERAPY
     Dates: start: 201205
  4. METHOCARBAMOL [Concomitant]
     Indication: MUSCLE RELAXANT
     Dates: start: 2008
  5. DIGOXIN [Concomitant]
     Dates: start: 201205
  6. SIMVASTATIN [Concomitant]
     Indication: CHOLESTEROL
     Dates: start: 2009
  7. FUROSEMIDE [Concomitant]
     Indication: FLUID RETENTION
     Dosage: 6 daily
  8. ASPIRIN [Concomitant]
  9. POTASSIUM GLUCONATE [Concomitant]

REACTIONS (2)
  - Cerebrovascular accident [Not Recovered/Not Resolved]
  - Musculoskeletal disorder [Not Recovered/Not Resolved]
